FAERS Safety Report 5334702-X (Version None)
Quarter: 2007Q2

REPORT INFORMATION
  Report Type: 
  Country: None (occurrence: None)
  Receive Date: 20070521
  Receipt Date: 20070504
  Transmission Date: 20071010
  Serious: Yes (Other)
  Sender: FDA-Public Use
  Company Number: 2007RR-07470

PATIENT

DRUGS (10)
  1. FENOFIBRATE [Suspect]
     Indication: BLOOD TRIGLYCERIDES INCREASED
     Dosage: 54 MG, QD
     Dates: start: 20030701
  2. PREDNISOLONE [Concomitant]
  3. CYCLOSPORINE [Concomitant]
  4. AZATHIOPRINE [Concomitant]
  5. VALSARTAN [Concomitant]
  6. METOPROLOL TARTRATE [Concomitant]
  7. CLONIDINE [Concomitant]
  8. FAMOTIDINE [Concomitant]
  9. CALCITONIN SALMON [Concomitant]
  10. ATORVASTATIN CALCIUM [Concomitant]

REACTIONS (1)
  - GRAFT DYSFUNCTION [None]
